FAERS Safety Report 9282109 (Version 1)
Quarter: 2013Q2

REPORT INFORMATION
  Report Type: Spontaneous
  Country: US (occurrence: None)
  Receive Date: 20130508
  Receipt Date: 20130508
  Transmission Date: 20140414
  Serious: Yes (Hospitalization)
  Sender: FDA-Public Use
  Company Number: None

PATIENT
  Age: 54 Year
  Sex: Female
  Weight: 68.1 kg

DRUGS (7)
  1. HEPARIN [Suspect]
     Dosage: CONTINUOUS IV
     Route: 042
     Dates: start: 20110413, end: 20110405
  2. ALPRAZOLAM [Concomitant]
  3. AZITHROMYCIN [Concomitant]
  4. CEFTRIAXONE [Concomitant]
  5. DOCUSATE [Concomitant]
  6. OXYCODONE [Concomitant]
  7. ARGATROBAN [Concomitant]

REACTIONS (4)
  - Pulmonary embolism [None]
  - Heparin-induced thrombocytopenia [None]
  - Anti-platelet antibody positive [None]
  - Platelet count decreased [None]
